FAERS Safety Report 15947652 (Version 3)
Quarter: 2020Q3

REPORT INFORMATION
  Report Type: Spontaneous
  Country: US (occurrence: US)
  Receive Date: 20190211
  Receipt Date: 20200827
  Transmission Date: 20201102
  Serious: No
  Sender: FDA-Public Use
  Company Number: US-PFIZER INC-2019053974

PATIENT
  Age: 66 Year
  Sex: Male

DRUGS (5)
  1. CEFTRIAXONE SODIUM. [Suspect]
     Active Substance: CEFTRIAXONE SODIUM
     Dosage: 1 G, UNK
     Route: 030
     Dates: start: 20190121, end: 20190122
  2. CEFTRIAXONE SODIUM. [Suspect]
     Active Substance: CEFTRIAXONE SODIUM
     Indication: SUBCUTANEOUS ABSCESS
     Dosage: UNK
  3. CEFTRIAXONE SODIUM. [Suspect]
     Active Substance: CEFTRIAXONE SODIUM
     Dosage: 1 G, UNK
     Route: 030
     Dates: start: 20190121, end: 20190122
  4. AUGMENTIN [Concomitant]
     Active Substance: AMOXICILLIN\CLAVULANATE POTASSIUM
     Indication: CELLULITIS STAPHYLOCOCCAL
     Dosage: UNK
     Dates: start: 20190121, end: 20190131
  5. AUGMENTIN [Concomitant]
     Active Substance: AMOXICILLIN\CLAVULANATE POTASSIUM
     Indication: EAR INFECTION

REACTIONS (8)
  - Myalgia [Recovered/Resolved]
  - Product use in unapproved indication [Unknown]
  - Chills [Recovered/Resolved]
  - Pyrexia [Unknown]
  - Influenza like illness [Unknown]
  - Off label use [Unknown]
  - Drug hypersensitivity [Recovered/Resolved]
  - Viral infection [Recovered/Resolved]

NARRATIVE: CASE EVENT DATE: 20190121
